FAERS Safety Report 9110453 (Version 1)
Quarter: 2013Q1

REPORT INFORMATION
  Report Type: Spontaneous
  Country: US (occurrence: US)
  Receive Date: 20130219
  Receipt Date: 20130219
  Transmission Date: 20140127
  Serious: Yes (Other)
  Sender: FDA-Public Use
  Company Number: US-BRACCO-008430

PATIENT
  Age: 52 Year
  Sex: Male

DRUGS (7)
  1. ISOVUE 370 [Suspect]
     Indication: CATHETERISATION CARDIAC
     Dates: start: 20120809, end: 20120809
  2. ISOVUE 370 [Suspect]
     Indication: ECHOCARDIOGRAM ABNORMAL
     Dates: start: 20120809, end: 20120809
  3. METFORMIN [Concomitant]
  4. ASPIRIN [Concomitant]
  5. BENADRYL [Concomitant]
     Dosage: GIVEN AT 6:02 AM
     Route: 042
     Dates: start: 20120809, end: 20120809
  6. GLYBURIDE [Concomitant]
  7. LISINOPRIL [Concomitant]

REACTIONS (1)
  - Respiratory disorder [Recovered/Resolved]
